FAERS Safety Report 6327405-6 (Version None)
Quarter: 2009Q3

REPORT INFORMATION
  Report Type: 
  Country: None (occurrence: None)
  Receive Date: 20090825
  Receipt Date: 20090813
  Transmission Date: 20100115
  Serious: Yes (Death, Other)
  Sender: FDA-Public Use
  Company Number: JP-PFIZER INC-2009224518

PATIENT
  Age: 38 Year

DRUGS (4)
  1. SILDENAFIL CITRATE [Suspect]
     Indication: PULMONARY HYPERTENSION
     Dosage: FREQUENCY: 3X/DAY,
     Route: 048
     Dates: start: 20080416, end: 20080417
  2. NITROGLYCERIN [Suspect]
     Indication: PULMONARY HYPERTENSION
     Dosage: UNK
     Route: 042
     Dates: start: 20080415, end: 20080417
  3. WARFARIN [Concomitant]
     Route: 048
  4. TRACLEER [Concomitant]
     Dosage: UNK
     Route: 048
     Dates: start: 20050701, end: 20080401

REACTIONS (2)
  - CIRCULATORY COLLAPSE [None]
  - DRUG INTERACTION [None]
